APPROVED DRUG PRODUCT: ESTRADIOL
Active Ingredient: ESTRADIOL
Strength: 0.1% (0.75GM/PACKET)
Dosage Form/Route: GEL;TRANSDERMAL
Application: A216055 | Product #003 | TE Code: AB
Applicant: AMNEAL PHARMACEUTICALS LLC
Approved: Jul 12, 2024 | RLD: No | RS: No | Type: RX